FAERS Safety Report 9744495 (Version 2)
Quarter: 2014Q2

REPORT INFORMATION
  Report Type: Spontaneous
  Country: US (occurrence: US)
  Receive Date: 20131210
  Receipt Date: 20140520
  Transmission Date: 20141212
  Serious: Yes (Hospitalization)
  Sender: FDA-Public Use
  Company Number: US-B.I. PHARMACEUTICALS,INC./RIDGEFIELD-2013-BI-41521BP

PATIENT
  Age: 83 Year
  Sex: Female
  Weight: 70.76 kg

DRUGS (13)
  1. PRADAXA [Suspect]
     Indication: ATRIAL FIBRILLATION
     Dosage: 300 MG
     Route: 065
     Dates: start: 20111121, end: 20120716
  2. LANOXIN [Concomitant]
     Dosage: 0.125 MG
     Route: 065
  3. PRANDIN [Concomitant]
     Dosage: 2 MG
     Route: 065
  4. DEMADEX [Concomitant]
     Dosage: 40 MG
     Route: 065
  5. ATENOLOL [Concomitant]
     Dosage: 50 MG
     Route: 065
  6. OMEPRAZOLE [Concomitant]
     Dosage: 20 MG
     Route: 065
  7. POTASSIUM CHLORIDE [Concomitant]
     Dosage: DAILY DOSE: 20 MEQ
     Route: 065
  8. CARDIZEM [Concomitant]
     Route: 065
  9. TYLENOL [Concomitant]
     Route: 065
  10. ASPIRIN [Concomitant]
     Route: 065
  11. DULCOLAX [Concomitant]
     Route: 065
  12. NOVOLOG [Concomitant]
     Route: 065
  13. SENOKOT S [Concomitant]
     Route: 065

REACTIONS (6)
  - Gastrointestinal haemorrhage [Unknown]
  - Transient ischaemic attack [Recovered/Resolved]
  - Abdominal discomfort [Recovered/Resolved]
  - Melaena [Recovered/Resolved]
  - Anaemia [Unknown]
  - Melaena [Recovered/Resolved]
